FAERS Safety Report 10383828 (Version 1)
Quarter: 2014Q3

REPORT INFORMATION
  Report Type: Spontaneous
  Country: GB (occurrence: GB)
  Receive Date: 20140814
  Receipt Date: 20140814
  Transmission Date: 20150326
  Serious: Yes (Hospitalization)
  Sender: FDA-Public Use
  Company Number: GB-BANPHARM-20142947

PATIENT
  Age: 38 Year

DRUGS (4)
  1. IBUPROFEN UNKNOWN PRODUCT [Suspect]
     Active Substance: IBUPROFEN
     Dosage: 2 DF, TOTAL
     Route: 048
  2. SALBUTAMOL [Concomitant]
     Active Substance: ALBUTEROL
     Dosage: 100 MG, PRN,
  3. FOSTAIR [Concomitant]
     Dosage: 2 DF, QD,
     Route: 055
  4. OLANZAPINE. [Concomitant]
     Active Substance: OLANZAPINE
     Dosage: 10 MG, QD,

REACTIONS (1)
  - Dyspnoea [Unknown]
